FAERS Safety Report 4603040-2 (Version None)
Quarter: 2005Q1

REPORT INFORMATION
  Report Type: 
  Country: None (occurrence: None)
  Receive Date: 20050307
  Receipt Date: 20050218
  Transmission Date: 20050727
  Serious: Yes (Death, Other)
  Sender: FDA-Public Use
  Company Number: 2005034815

PATIENT
  Age: 20 Year
  Sex: Female

DRUGS (2)
  1. HYDROCORTISONE [Suspect]
     Indication: PROPHYLAXIS
     Dosage: 100 MG INTRAVENOUS
     Route: 042
     Dates: start: 20050205, end: 20050205
  2. IOHEXOL (IOHEXOL) [Suspect]
     Indication: COMPUTERISED TOMOGRAM
     Dosage: 100 ML 1 D, INTRAVENOUS
     Route: 042
     Dates: start: 20050205, end: 20050205

REACTIONS (4)
  - CARDIAC FAILURE [None]
  - CONVULSION [None]
  - MUSCULOSKELETAL STIFFNESS [None]
  - OXYGEN SATURATION DECREASED [None]
